FAERS Safety Report 13846836 (Version 1)
Quarter: 2017Q3

REPORT INFORMATION
  Report Type: Spontaneous
  Country: US (occurrence: US)
  Receive Date: 20170808
  Receipt Date: 20170808
  Transmission Date: 20171127
  Serious: No
  Sender: FDA-Public Use
  Company Number: US-SA-2017SA103823

PATIENT
  Age: 66 Year
  Weight: 77.11 kg

DRUGS (2)
  1. XYZAL ALLERGY 24HR [Suspect]
     Active Substance: LEVOCETIRIZINE DIHYDROCHLORIDE
     Indication: MULTIPLE ALLERGIES
     Dosage: 1 EVERY EVENING
     Route: 048
     Dates: start: 20170401, end: 20170501
  2. XYZAL ALLERGY 24HR [Suspect]
     Active Substance: LEVOCETIRIZINE DIHYDROCHLORIDE
     Indication: MULTIPLE ALLERGIES
     Dosage: 1 EVERY EVENING
     Route: 048
     Dates: start: 20170401, end: 20170501

REACTIONS (5)
  - Sneezing [Recovered/Resolved]
  - Drug ineffective [Unknown]
  - Rhinorrhoea [Recovered/Resolved]
  - Lacrimation increased [Recovered/Resolved]
  - Nasal pruritus [Recovered/Resolved]
